FAERS Safety Report 12791939 (Version 1)
Quarter: 2016Q3

REPORT INFORMATION
  Report Type: Spontaneous
  Country: JP (occurrence: JP)
  Receive Date: 20160929
  Receipt Date: 20160929
  Transmission Date: 20161109
  Serious: Yes (Life-Threatening, Other)
  Sender: FDA-Public Use
  Company Number: JP-OTSUKA-JP-2011-10602

PATIENT
  Age: 60 Year
  Sex: Female
  Weight: 70 kg

DRUGS (10)
  1. PLETAAL POWDER 20% [Suspect]
     Active Substance: CILOSTAZOL
     Indication: CEREBRAL VASOCONSTRICTION
     Dosage: 100 MG, BID
     Route: 051
     Dates: start: 20110325, end: 20110329
  2. PRIMPERAN [Concomitant]
     Active Substance: METOCLOPRAMIDE HYDROCHLORIDE
     Indication: ILEUS
     Dosage: 10 MG, BID
     Route: 051
     Dates: start: 20110326, end: 20110410
  3. PRIMPERAN [Concomitant]
     Active Substance: METOCLOPRAMIDE HYDROCHLORIDE
     Indication: PROPHYLAXIS
  4. GLYCEOL [Concomitant]
     Active Substance: GLYCERIN
     Indication: CEREBROVASCULAR DISORDER
     Dosage: 200 ML, TID
     Route: 051
     Dates: start: 20110324, end: 20110405
  5. ATELEC [Concomitant]
     Active Substance: CILNIDIPINE
     Indication: BLOOD PRESSURE MANAGEMENT
     Dosage: 1 DF, BID
     Route: 051
     Dates: start: 20110326
  6. ERIL [Concomitant]
     Active Substance: ENALAPRIL MALEATE
     Indication: CEREBRAL VASOCONSTRICTION
     Dosage: 30 MG, TID
     Route: 041
     Dates: start: 20110325, end: 20110408
  7. ERIL [Concomitant]
     Active Substance: ENALAPRIL MALEATE
     Indication: PROPHYLAXIS
  8. BIOFERMIN [Concomitant]
     Active Substance: BACILLUS SUBTILIS\LACTOBACILLUS ACIDOPHILUS\STREPTOCOCCUS FAECAIS
     Indication: FUNCTIONAL GASTROINTESTINAL DISORDER
     Dosage: 1 G, TID
     Route: 051
     Dates: start: 20110326
  9. ACINON [Concomitant]
     Active Substance: NIZATIDINE
     Indication: PROPHYLAXIS AGAINST GASTROINTESTINAL ULCER
     Dosage: 1 DF, BID
     Route: 051
     Dates: start: 20110326, end: 20110415
  10. FLUMARIN [Concomitant]
     Active Substance: FLOMOXEF SODIUM
     Indication: INFECTION PROPHYLAXIS
     Dosage: 1 G, TID
     Route: 051
     Dates: start: 20110324, end: 20110329

REACTIONS (4)
  - Cardiac failure [Recovered/Resolved]
  - Hypotension [Recovered/Resolved]
  - Tachycardia [Recovered/Resolved]
  - Dehydration [Unknown]

NARRATIVE: CASE EVENT DATE: 20110328
